FAERS Safety Report 8240139-6 (Version None)
Quarter: 2012Q1

REPORT INFORMATION
  Report Type: 
  Country: None (occurrence: None)
  Receive Date: 20120327
  Receipt Date: 20120327
  Transmission Date: 20120608
  Serious: Yes (Disabling)
  Sender: FDA-Public Use
  Company Number: None

PATIENT
  Age: 51 Year
  Sex: Female
  Weight: 90.7194 kg

DRUGS (1)
  1. CELEXA [Suspect]
     Indication: INSOMNIA
     Dosage: 1 TABLET 1 PER DAY
     Dates: start: 20001215, end: 20010315

REACTIONS (3)
  - MENTAL DISORDER [None]
  - EMOTIONAL DISORDER [None]
  - WEIGHT INCREASED [None]
